FAERS Safety Report 4558315-2 (Version None)
Quarter: 2005Q1

REPORT INFORMATION
  Report Type: 
  Country: None (occurrence: None)
  Receive Date: 20050103
  Receipt Date: 20040929
  Transmission Date: 20050727
  Serious: Yes (Other)
  Sender: FDA-Public Use
  Company Number: 2004UW20473

PATIENT
  Age: 79 Year
  Sex: Female
  Weight: 65.7716 kg

DRUGS (6)
  1. CRESTOR [Suspect]
     Indication: BLOOD CHOLESTEROL INCREASED
     Dosage: 10 MG PO
     Route: 048
     Dates: start: 20040701
  2. TOPROL-XL [Concomitant]
  3. DILTIAZEM [Concomitant]
  4. DOXAZOSIN [Concomitant]
  5. TRIAVIL [Concomitant]
  6. XANAX [Concomitant]

REACTIONS (2)
  - NAIL DISCOLOURATION [None]
  - NAIL DISORDER [None]
